FAERS Safety Report 13181029 (Version 1)
Quarter: 2017Q1

REPORT INFORMATION
  Report Type: Spontaneous
  Country: US (occurrence: US)
  Receive Date: 20170202
  Receipt Date: 20170202
  Transmission Date: 20170428
  Serious: No
  Sender: FDA-Public Use
  Company Number: US-SMITH AND NEPHEW, INC-2016SMT00744

PATIENT
  Sex: Female
  Weight: 63.49 kg

DRUGS (10)
  1. REGRANEX [Suspect]
     Active Substance: BECAPLERMIN
     Indication: ULCER
     Dosage: UNK
     Dates: start: 201608
  2. CELLCEPT [Concomitant]
     Active Substance: MYCOPHENOLATE MOFETIL\MYCOPHENOLATE MOFETIL HYDROCHLORIDE
     Dosage: 7.6 ML, 2X/DAY
  3. GABAPENTIN. [Concomitant]
     Active Substance: GABAPENTIN
     Indication: NEUROPATHY PERIPHERAL
     Dosage: UNK, 3X/DAY
  4. AMLODIPINE [Concomitant]
     Active Substance: AMLODIPINE BESYLATE
     Dosage: UNK, 1X/DAY
  5. OMEPRAZOLE. [Concomitant]
     Active Substance: OMEPRAZOLE
     Dosage: UNK, 2X/DAY
  6. IRON SUPPLEMENT [Concomitant]
     Active Substance: IRON
     Dosage: UNK, 1X/DAY
  7. MULTIVITAMIN (CENTRUM CHEWABLE) [Concomitant]
     Dosage: UNK, 1X/DAY
  8. FLUOXETINE [Concomitant]
     Active Substance: FLUOXETINE HYDROCHLORIDE
     Dosage: 40 MG, 1X/DAY
  9. ADCIRCA [Concomitant]
     Active Substance: TADALAFIL
     Dosage: 2 TABLETS, 1X/DAY
  10. HYCET [Concomitant]
     Active Substance: ACETAMINOPHEN\HYDROCODONE BITARTRATE
     Dosage: UNK, 3X/DAY

REACTIONS (3)
  - Off label use [Unknown]
  - Skin injury [Not Recovered/Not Resolved]
  - Pain [Not Recovered/Not Resolved]
